FAERS Safety Report 16093423 (Version 5)
Quarter: 2019Q2

REPORT INFORMATION
  Report Type: Spontaneous
  Country: JP (occurrence: JP)
  Receive Date: 20190320
  Receipt Date: 20190603
  Transmission Date: 20190711
  Serious: Yes (Death, Other)
  Sender: FDA-Public Use
  Company Number: JP-ROCHE-2285881

PATIENT
  Age: 53 Year
  Sex: Female
  Weight: 29 kg

DRUGS (9)
  1. TEMOZOLOMIDE. [Concomitant]
     Active Substance: TEMOZOLOMIDE
     Indication: OFF LABEL USE
  2. DEPAKENE-R [Concomitant]
     Active Substance: VALPROATE SODIUM
     Indication: OFF LABEL USE
     Dosage: DOSAGE IS UNCERTAIN.
     Route: 065
  3. MAXALT [Concomitant]
     Active Substance: RIZATRIPTAN BENZOATE
     Indication: OFF LABEL USE
     Dosage: DOSAGE IS UNCERTAIN.
     Route: 065
  4. FEXOFENADINE HYDROCHLORIDE. [Concomitant]
     Active Substance: FEXOFENADINE HYDROCHLORIDE
     Indication: OFF LABEL USE
     Dosage: DOSAGE IS UNCERTAIN.
     Route: 065
  5. AVASTIN [Suspect]
     Active Substance: BEVACIZUMAB
     Indication: ACTH-PRODUCING PITUITARY TUMOUR
     Route: 041
     Dates: start: 20160615, end: 20171025
  6. LYRICA [Concomitant]
     Active Substance: PREGABALIN
     Indication: OFF LABEL USE
     Dosage: DOSAGE IS UNCERTAIN.
     Route: 048
  7. AVASTIN [Suspect]
     Active Substance: BEVACIZUMAB
     Indication: OFF LABEL USE
  8. TEMOZOLOMIDE. [Concomitant]
     Active Substance: TEMOZOLOMIDE
     Indication: ACTH-PRODUCING PITUITARY TUMOUR
     Dosage: DOSAGE IS UNCERTAIN.
     Route: 065
     Dates: start: 20160509, end: 20171031
  9. DAIPHEN [Concomitant]
     Active Substance: SULFAMETHOXAZOLE\TRIMETHOPRIM
     Indication: OFF LABEL USE
     Dosage: DOSAGE IS UNCERTAIN.
     Route: 065
     Dates: start: 20160509, end: 20171031

REACTIONS (4)
  - Off label use [Unknown]
  - Leukoencephalopathy [Not Recovered/Not Resolved]
  - Product use in unapproved indication [Unknown]
  - Metastases to meninges [Fatal]

NARRATIVE: CASE EVENT DATE: 20171025
